FAERS Safety Report 7705888-4 (Version None)
Quarter: 2011Q3

REPORT INFORMATION
  Report Type: 
  Country: None (occurrence: None)
  Receive Date: 20110824
  Receipt Date: 20110810
  Transmission Date: 20111222
  Serious: Yes (Hospitalization)
  Sender: FDA-Public Use
  Company Number: ES-ELI_LILLY_AND_COMPANY-ES201108003564

PATIENT
  Sex: Female
  Weight: 60 kg

DRUGS (4)
  1. FROBEN [Concomitant]
     Indication: ANTIINFLAMMATORY THERAPY
     Dosage: 1 DF, QD
     Route: 048
  2. URBASON                            /00049601/ [Concomitant]
     Indication: ANTIINFLAMMATORY THERAPY
     Dosage: 4 MG, QD
     Route: 048
  3. ENBREL [Concomitant]
     Indication: RHEUMATOID ARTHRITIS
     Dosage: 1 DF, WEEKLY (1/W)
     Route: 058
  4. FORTEO [Suspect]
     Indication: OSTEOPOROSIS
     Dosage: 20 UG, QD
     Route: 058
     Dates: start: 20110629, end: 20110709

REACTIONS (1)
  - INTESTINAL OBSTRUCTION [None]
